FAERS Safety Report 6124927-8 (Version None)
Quarter: 2009Q1

REPORT INFORMATION
  Report Type: 
  Country: None (occurrence: None)
  Receive Date: 20090319
  Receipt Date: 20090311
  Transmission Date: 20090719
  Serious: No
  Sender: FDA-Public Use
  Company Number: US-B.I. PHARMACEUTICALS,INC./RIDGEFIELD-2009-BP-03184BP

PATIENT
  Sex: Female

DRUGS (3)
  1. ZANTAC 150 [Suspect]
     Indication: GASTROOESOPHAGEAL REFLUX DISEASE
     Dosage: 450MG
     Route: 048
     Dates: start: 20090311
  2. ZANTAC 150 [Suspect]
     Dosage: 300MG
     Route: 048
     Dates: start: 20081001, end: 20090310
  3. UNSPECIFIED MEDICATION [Concomitant]
     Indication: VERTIGO
     Route: 048

REACTIONS (2)
  - INCORRECT DOSE ADMINISTERED [None]
  - NERVOUSNESS [None]
